FAERS Safety Report 8325306-5 (Version None)
Quarter: 2012Q2

REPORT INFORMATION
  Report Type: 
  Country: None (occurrence: None)
  Receive Date: 20120427
  Receipt Date: 20120420
  Transmission Date: 20120825
  Serious: Yes (Other)
  Sender: FDA-Public Use
  Company Number: PD 161

PATIENT
  Age: 72 Year
  Sex: Female

DRUGS (7)
  1. AMITRIPTYLINE HCL [Concomitant]
  2. CITALOPRAM HYDROBROMIDE [Concomitant]
  3. CODEINE [Concomitant]
  4. DIGOXIN [Concomitant]
  5. LEVETIRACETAM [Suspect]
     Indication: EPILEPSY
     Dosage: 250 MG TWICE DAILY
  6. SIMVASTATIN [Concomitant]
  7. INDAPAMIDE [Concomitant]

REACTIONS (11)
  - INCONTINENCE [None]
  - PSYCHOTIC DISORDER [None]
  - DELIRIUM [None]
  - MOBILITY DECREASED [None]
  - DECREASED EYE CONTACT [None]
  - PERSECUTORY DELUSION [None]
  - DEPRESSION [None]
  - PARANOIA [None]
  - SOMNOLENCE [None]
  - DRUG INTERACTION [None]
  - HALLUCINATION [None]
